FAERS Safety Report 9447748 (Version 1)
Quarter: 2013Q3

REPORT INFORMATION
  Report Type: Spontaneous
  Country: US (occurrence: US)
  Receive Date: 20130808
  Receipt Date: 20130808
  Transmission Date: 20140515
  Serious: Yes (Other)
  Sender: FDA-Public Use
  Company Number: US-ASTRAZENECA-2013SE59017

PATIENT
  Sex: Male

DRUGS (1)
  1. SEROQUEL XR [Suspect]
     Route: 048

REACTIONS (11)
  - Neuropathy peripheral [Unknown]
  - Hypoacusis [Unknown]
  - Diabetes mellitus [Unknown]
  - Injury [Unknown]
  - General physical health deterioration [Unknown]
  - Loss of consciousness [Unknown]
  - Gait disturbance [Unknown]
  - Decreased interest [Unknown]
  - Bone disorder [Unknown]
  - Body height decreased [Unknown]
  - Osteoporosis [Unknown]
